FAERS Safety Report 5409738-0 (Version None)
Quarter: 2007Q3

REPORT INFORMATION
  Report Type: 
  Country: None (occurrence: None)
  Receive Date: 20070809
  Receipt Date: 20070730
  Transmission Date: 20080115
  Serious: Yes (Hospitalization)
  Sender: FDA-Public Use
  Company Number: B0480165A

PATIENT
  Age: 60 Year
  Sex: Male
  Weight: 115.3 kg

DRUGS (11)
  1. DEXAMETHASONE 0.5MG TAB [Suspect]
     Dosage: 8MG THREE TIMES PER DAY
     Route: 048
     Dates: start: 20070524, end: 20070525
  2. ONDANSETRON [Suspect]
     Route: 048
     Dates: start: 20070525, end: 20070525
  3. GW679769 [Suspect]
     Route: 048
     Dates: start: 20070525, end: 20070525
  4. DOCETAXEL [Suspect]
     Route: 042
     Dates: start: 20070525, end: 20070525
  5. ALBUTEROL [Concomitant]
     Indication: ASTHMA
     Dosage: 90MCG AS REQUIRED
     Route: 048
     Dates: start: 20050101
  6. GABAPENTIN [Concomitant]
     Route: 048
  7. LANSOPRAZOLE [Concomitant]
     Dosage: 30MG PER DAY
     Route: 048
     Dates: start: 20050101
  8. LOVASTATIN [Concomitant]
     Dosage: 40MG PER DAY
     Route: 048
     Dates: start: 20010601
  9. METRONIDAZOLE [Concomitant]
     Dosage: 1DAB TWICE PER DAY
     Route: 061
  10. MULTI-VITAMIN [Concomitant]
     Indication: PROPHYLAXIS
     Dosage: 1TAB PER DAY
     Route: 048
     Dates: start: 20050101
  11. PEGFILGRASTIM [Concomitant]
     Indication: INFECTION
     Dosage: 6MG SINGLE DOSE
     Route: 058
     Dates: start: 20070713, end: 20070713

REACTIONS (2)
  - CELLULITIS ORBITAL [None]
  - DIARRHOEA [None]
